FAERS Safety Report 21707683 (Version 2)
Quarter: 2023Q1

REPORT INFORMATION
  Report Type: Report from Study
  Country: US (occurrence: None)
  Receive Date: 20221209
  Receipt Date: 20230314
  Transmission Date: 20230418
  Serious: Yes (Hospitalization, Other)
  Sender: FDA-Public Use
  Company Number: US-ROCHE-3237934

PATIENT
  Age: 76 Year
  Sex: Male
  Weight: 56.2 kg

DRUGS (4)
  1. TENECTEPLASE [Suspect]
     Active Substance: TENECTEPLASE
     Indication: Ischaemic stroke
     Dosage: 50MG/10ML
     Route: 014
     Dates: start: 20221124, end: 20221124
  2. REMDESIVIR [Concomitant]
     Active Substance: REMDESIVIR
     Dates: start: 20221128
  3. DECADRON [Concomitant]
     Active Substance: DEXAMETHASONE
     Dates: start: 20221128
  4. ZOSYN [Concomitant]
     Active Substance: PIPERACILLIN SODIUM\TAZOBACTAM SODIUM
     Dates: start: 20221128

REACTIONS (3)
  - Neurological decompensation [Not Recovered/Not Resolved]
  - Dyspnoea [Unknown]
  - Pneumonia aspiration [Not Recovered/Not Resolved]

NARRATIVE: CASE EVENT DATE: 20221128
